FAERS Safety Report 5418323-6 (Version None)
Quarter: 2007Q3

REPORT INFORMATION
  Report Type: 
  Country: None (occurrence: None)
  Receive Date: 20070817
  Receipt Date: 20070806
  Transmission Date: 20080115
  Serious: Yes (Other)
  Sender: FDA-Public Use
  Company Number: US-KINGPHARMUSA00001-K200700875

PATIENT

DRUGS (6)
  1. TAPAZOLE [Suspect]
     Indication: HYPOTHYROIDISM
     Dosage: 10 MG, BID
     Dates: start: 20070501
  2. TAPAZOLE [Suspect]
     Dosage: 10 MG, QD
     Dates: end: 20070701
  3. DILANTIN [Concomitant]
     Indication: CONVULSION
  4. COMBIVENT /01033501/ [Concomitant]
  5. TACEPRA [Concomitant]
  6. PHENERGAN                          /00033001/ [Concomitant]

REACTIONS (4)
  - AREFLEXIA [None]
  - COORDINATION ABNORMAL [None]
  - NEUROPATHY [None]
  - POLYNEUROPATHY [None]
